FAERS Safety Report 24775250 (Version 1)
Quarter: 2024Q4

REPORT INFORMATION
  Report Type: Spontaneous
  Country: IT (occurrence: IT)
  Receive Date: 20241226
  Receipt Date: 20241226
  Transmission Date: 20250115
  Serious: Yes (Hospitalization, Other)
  Sender: AUROBINDO
  Company Number: IT-AMGEN-ITASP2024238978

PATIENT
  Age: 53 Year
  Sex: Male

DRUGS (6)
  1. CINACALCET [Suspect]
     Active Substance: CINACALCET
     Indication: Hyperparathyroidism primary
     Dosage: 60 MILLIGRAM, ONCE A DAY [30 MILLIGRAM, BID]
     Route: 065
     Dates: start: 2021
  2. CINACALCET [Suspect]
     Active Substance: CINACALCET
     Indication: Parathyroid tumour malignant
  3. VALSARTAN [Concomitant]
     Active Substance: VALSARTAN
     Indication: Hypertension
     Dosage: 40 MILLIGRAM, ONCE A DAY [40 MILLIGRAM, QD]
     Route: 065
  4. OMEPRAZOLE [Concomitant]
     Active Substance: OMEPRAZOLE
     Indication: Gastrooesophageal reflux disease
     Dosage: 20 MILLIGRAM, ONCE A DAY [20 MILLIGRAM, QD]
     Route: 065
  5. ZOLEDRONIC ACID [Concomitant]
     Active Substance: ZOLEDRONIC ACID
     Indication: Brown tumour
     Dosage: 4 MILLIGRAM
     Route: 042
     Dates: start: 2021
  6. CHOLECALCIFEROL [Concomitant]
     Active Substance: CHOLECALCIFEROL
     Indication: Brown tumour
     Dosage: 2000 INTERNATIONAL UNIT, ONCE A DAY [2000 INTERNATIONAL UNIT, QD]
     Route: 065
     Dates: start: 2021

REACTIONS (1)
  - Hungry bone syndrome [Unknown]
